FAERS Safety Report 8930415 (Version 1)
Quarter: 2012Q4

REPORT INFORMATION
  Report Type: 
  Country: CA (occurrence: CA)
  Receive Date: 20121128
  Receipt Date: 20121128
  Transmission Date: 20130627
  Serious: Yes (Other)
  Sender: FDA-Public Use
  Company Number: CA-ROCHE-1160074

PATIENT
  Sex: Female
  Weight: 58 kg

DRUGS (2)
  1. XOLAIR [Suspect]
     Indication: PRODUCT USED FOR UNKNOWN INDICATION
     Route: 058
     Dates: start: 20060801
  2. XOLAIR [Suspect]
     Route: 065
     Dates: start: 20060814

REACTIONS (5)
  - Asthma [Recovering/Resolving]
  - Insomnia [Recovering/Resolving]
  - Pyrexia [Recovering/Resolving]
  - Dark circles under eyes [Unknown]
  - Arthralgia [Unknown]
